FAERS Safety Report 17823722 (Version 2)
Quarter: 2020Q2

REPORT INFORMATION
  Report Type: Spontaneous
  Country: US (occurrence: US)
  Receive Date: 20200526
  Receipt Date: 20200603
  Transmission Date: 20200714
  Serious: No
  Sender: FDA-Public Use
  Company Number: US-PFIZER INC-2020206440

PATIENT
  Age: 54 Year
  Sex: Female
  Weight: 50.8 kg

DRUGS (3)
  1. LYRICA [Suspect]
     Active Substance: PREGABALIN
     Indication: BACK PAIN
     Dosage: 150 MG, 2X/DAY
  2. CYMBALTA [Concomitant]
     Active Substance: DULOXETINE HYDROCHLORIDE
     Indication: DEPRESSION
     Dosage: 60 MG, 1X/DAY (60 MG ONCE DAILY)
  3. LYRICA [Suspect]
     Active Substance: PREGABALIN
     Dosage: 150 MG, 1X/DAY
     Dates: start: 20200522

REACTIONS (7)
  - Agitated depression [Unknown]
  - Feeling abnormal [Unknown]
  - Nephropathy [Unknown]
  - Nausea [Unknown]
  - Stress [Unknown]
  - Immune system disorder [Unknown]
  - Intentional product use issue [Unknown]

NARRATIVE: CASE EVENT DATE: 20200522
